FAERS Safety Report 24650116 (Version 1)
Quarter: 2024Q4

REPORT INFORMATION
  Report Type: Report from Study
  Country: ZA (occurrence: ZA)
  Receive Date: 20241122
  Receipt Date: 20241122
  Transmission Date: 20250114
  Serious: Yes (Other)
  Sender: ALEXION PHARMACEUTICALS
  Company Number: ZA-AstraZeneca-CH-00749886A

PATIENT
  Age: 89 Year

DRUGS (16)
  1. DAPAGLIFLOZIN [Suspect]
     Active Substance: DAPAGLIFLOZIN
     Dosage: UNK
  2. DAPAGLIFLOZIN [Suspect]
     Active Substance: DAPAGLIFLOZIN
     Dosage: UNK
  3. DAPAGLIFLOZIN [Suspect]
     Active Substance: DAPAGLIFLOZIN
     Dosage: UNK
  4. DAPAGLIFLOZIN [Suspect]
     Active Substance: DAPAGLIFLOZIN
     Dosage: UNK
  5. LANOXIN [Concomitant]
     Active Substance: DIGOXIN
  6. LANOXIN [Concomitant]
     Active Substance: DIGOXIN
     Route: 065
  7. FUROSEMIDE [Concomitant]
     Active Substance: FUROSEMIDE
  8. FUROSEMIDE [Concomitant]
     Active Substance: FUROSEMIDE
     Route: 065
  9. Spiractin [Concomitant]
  10. Spiractin [Concomitant]
     Route: 065
  11. EQUISIN [Concomitant]
  12. EQUISIN [Concomitant]
     Route: 065
  13. BISOPROLOL FUMARATE [Concomitant]
     Active Substance: BISOPROLOL FUMARATE
  14. BISOPROLOL FUMARATE [Concomitant]
     Active Substance: BISOPROLOL FUMARATE
     Route: 065
  15. PREDATOR [Concomitant]
     Active Substance: LIDOCAINE HYDROCHLORIDE
  16. PREDATOR [Concomitant]
     Active Substance: LIDOCAINE HYDROCHLORIDE
     Route: 065

REACTIONS (1)
  - Neoplasm malignant [Unknown]
